FAERS Safety Report 6228560-9 (Version None)
Quarter: 2009Q2

REPORT INFORMATION
  Report Type: 
  Country: None (occurrence: None)
  Receive Date: 20090612
  Receipt Date: 20090605
  Transmission Date: 20091009
  Serious: Yes (Hospitalization, Other)
  Sender: FDA-Public Use
  Company Number: CH-ABBOTT-09P-151-0577585-00

PATIENT
  Sex: Female
  Weight: 64 kg

DRUGS (2)
  1. HUMIRA [Suspect]
     Indication: RHEUMATOID ARTHRITIS
     Dates: start: 20081224, end: 20090514
  2. METHOTREXATE [Concomitant]
     Indication: RHEUMATOID ARTHRITIS
     Dates: start: 20040824

REACTIONS (4)
  - GINGIVAL EROSION [None]
  - LYMPHOCYTOSIS [None]
  - RASH PUSTULAR [None]
  - THROMBOCYTOPENIA [None]
